FAERS Safety Report 25759583 (Version 1)
Quarter: 2025Q3

REPORT INFORMATION
  Report Type: Spontaneous
  Country: US (occurrence: US)
  Receive Date: 20250904
  Receipt Date: 20250904
  Transmission Date: 20251021
  Serious: No
  Sender: DIFGEN PHARMACEUTICALS LLC
  Company Number: US-Difgen-012132

PATIENT
  Sex: Male

DRUGS (1)
  1. NICOTINE [Suspect]
     Active Substance: NICOTINE
     Indication: Nicotine dependence
     Route: 062

REACTIONS (1)
  - Drug ineffective [Unknown]
